FAERS Safety Report 5422719-6 (Version None)
Quarter: 2007Q3

REPORT INFORMATION
  Report Type: 
  Country: None (occurrence: None)
  Receive Date: 20070820
  Receipt Date: 20070808
  Transmission Date: 20080115
  Serious: Yes (Hospitalization, Other)
  Sender: FDA-Public Use
  Company Number: 236728K07USA

PATIENT
  Age: 56 Year
  Sex: Female

DRUGS (4)
  1. REBIF [Suspect]
     Indication: MULTIPLE SCLEROSIS
     Dosage: 22 MCG, 3 IN 1 WEEKS, SUBCUTANEOUS
     Route: 058
     Dates: start: 20070326
  2. VYTORIN [Concomitant]
  3. FOSAMAX [Concomitant]
  4. ADDERALL (OBETROL) [Concomitant]

REACTIONS (2)
  - APPENDICITIS [None]
  - PROCEDURAL PAIN [None]
